FAERS Safety Report 13700803 (Version 1)
Quarter: 2017Q2

REPORT INFORMATION
  Report Type: Spontaneous
  Country: FR (occurrence: FR)
  Receive Date: 20170629
  Receipt Date: 20170629
  Transmission Date: 20170830
  Serious: Yes (Other)
  Sender: FDA-Public Use
  Company Number: FR-BAYER-2017-125268

PATIENT
  Age: 31 Year
  Sex: Female

DRUGS (1)
  1. MIRENA [Suspect]
     Active Substance: LEVONORGESTREL
     Indication: CONTRACEPTION
     Dosage: 20 MCG/24HR, CONT
     Route: 015
     Dates: start: 20151125, end: 20170522

REACTIONS (16)
  - Vertigo [Recovered/Resolved]
  - Weight increased [Recovered/Resolved]
  - Acne [Recovered/Resolved]
  - Vaginal discharge [Recovered/Resolved]
  - Tachycardia [Recovered/Resolved]
  - Back pain [Recovered/Resolved]
  - Amnesia [Recovered/Resolved]
  - Hyperhidrosis [Recovered/Resolved]
  - Paraesthesia [Recovered/Resolved]
  - Aggression [Recovered/Resolved]
  - Tendonitis [Recovered/Resolved]
  - Abdominal pain [Recovered/Resolved]
  - Breast pain [Recovered/Resolved]
  - Insomnia [Recovered/Resolved]
  - Dyspareunia [Recovered/Resolved]
  - Anxiety [Recovered/Resolved]

NARRATIVE: CASE EVENT DATE: 201703
